FAERS Safety Report 5365407-7 (Version None)
Quarter: 2007Q2

REPORT INFORMATION
  Report Type: 
  Country: None (occurrence: None)
  Receive Date: 20070530
  Receipt Date: 20070115
  Transmission Date: 20071010
  Serious: No
  Sender: FDA-Public Use
  Company Number: 2007PV028444

PATIENT
  Age: 62 Year
  Sex: Male
  Weight: 133.8111 kg

DRUGS (7)
  1. BYETTA [Suspect]
     Indication: DIABETES MELLITUS NON-INSULIN-DEPENDENT
     Dosage: 10 MCG; SC 5 MCG; SC 10 MCG;BID;SC 5 MCG;BID;SC
     Route: 058
     Dates: start: 20061215, end: 20070112
  2. BYETTA [Suspect]
     Indication: DIABETES MELLITUS NON-INSULIN-DEPENDENT
     Dosage: 10 MCG; SC 5 MCG; SC 10 MCG;BID;SC 5 MCG;BID;SC
     Route: 058
     Dates: start: 20061214, end: 20070114
  3. BYETTA [Suspect]
     Indication: DIABETES MELLITUS NON-INSULIN-DEPENDENT
     Dosage: 10 MCG; SC 5 MCG; SC 10 MCG;BID;SC 5 MCG;BID;SC
     Route: 058
     Dates: start: 20070113
  4. BYETTA [Suspect]
     Indication: DIABETES MELLITUS NON-INSULIN-DEPENDENT
     Dosage: 10 MCG; SC 5 MCG; SC 10 MCG;BID;SC 5 MCG;BID;SC
     Route: 058
     Dates: start: 20070115
  5. METFORMIN HCL [Concomitant]
  6. GLIPIZIDE [Concomitant]
  7. AVANDIA [Concomitant]

REACTIONS (3)
  - ANOREXIA [None]
  - BLOOD GLUCOSE INCREASED [None]
  - NAUSEA [None]
